FAERS Safety Report 23041459 (Version 1)
Quarter: 2023Q4

REPORT INFORMATION
  Report Type: Spontaneous
  Country: CN (occurrence: CN)
  Receive Date: 20231007
  Receipt Date: 20231007
  Transmission Date: 20240110
  Serious: Yes (Other)
  Sender: FDA-Public Use
  Company Number: CN-002147023-NVSC2023CN212930

PATIENT
  Age: 76 Year
  Sex: Male
  Weight: 57 kg

DRUGS (1)
  1. TASIGNA [Suspect]
     Active Substance: NILOTINIB
     Indication: Colon neoplasm
     Dosage: 300 MG, BID
     Route: 048
     Dates: start: 20230919, end: 20230925

REACTIONS (4)
  - Rash [Recovering/Resolving]
  - Papule [Recovering/Resolving]
  - Pain [Recovering/Resolving]
  - Erythema of eyelid [Recovering/Resolving]

NARRATIVE: CASE EVENT DATE: 20230922
